FAERS Safety Report 6440116-1 (Version None)
Quarter: 2009Q4

REPORT INFORMATION
  Report Type: 
  Country: None (occurrence: None)
  Receive Date: 20091113
  Receipt Date: 20081203
  Transmission Date: 20100525
  Serious: No
  Sender: FDA-Public Use
  Company Number: A0759067A

PATIENT
  Sex: Female

DRUGS (3)
  1. COREG [Suspect]
     Indication: HYPERTENSION
     Dosage: 12.5MG TWICE PER DAY
     Route: 048
  2. LISINOPRIL [Concomitant]
  3. UNKNOWN MEDICATION [Concomitant]

REACTIONS (1)
  - BRONCHOSPASM [None]
